FAERS Safety Report 8972056 (Version 2)
Quarter: 2013Q4

REPORT INFORMATION
  Report Type: Spontaneous
  Country: GB (occurrence: GB)
  Receive Date: 20121218
  Receipt Date: 20131016
  Transmission Date: 20140711
  Serious: Yes (Hospitalization)
  Sender: FDA-Public Use
  Company Number: GB-WATSON-2012-22168

PATIENT
  Age: 50 Year
  Sex: Female
  Weight: 69 kg

DRUGS (9)
  1. LAMOTRIGINE (UNKNOWN) [Suspect]
     Indication: EPILEPSY
     Dosage: 50 MG, UNKNOWN
     Route: 048
     Dates: start: 20120621, end: 20120912
  2. AZATHIOPRINE [Concomitant]
     Indication: SYSTEMIC LUPUS ERYTHEMATOSUS
     Dosage: 100 MG, UNKNOWN
     Route: 048
     Dates: end: 20120907
  3. MST CONTINUS [Concomitant]
     Indication: ARTHRALGIA
     Dosage: 20 MG, DAILY. LONG TERM
     Route: 048
  4. MST CONTINUS [Concomitant]
     Dosage: LONG TERM
  5. ADCAL                              /00751519/ [Concomitant]
     Indication: PRODUCT USED FOR UNKNOWN INDICATION
     Dosage: 1 DF, BID
     Route: 065
  6. CLOPIDOGREL [Concomitant]
     Indication: PRODUCT USED FOR UNKNOWN INDICATION
     Dosage: 75 MG, UNKNOWN. LONG TERM
     Route: 065
  7. AMITRIPTYLINE [Concomitant]
     Indication: PRODUCT USED FOR UNKNOWN INDICATION
     Dosage: 50 MG, UNKNOWN. LONG TERM
     Route: 065
  8. SOLIFENACIN [Concomitant]
     Indication: PRODUCT USED FOR UNKNOWN INDICATION
     Dosage: 10 MG, DAILY
     Route: 065
  9. GABAPENTIN [Concomitant]
     Indication: PRODUCT USED FOR UNKNOWN INDICATION
     Dosage: 600 MG, UNKNOWN
     Route: 065

REACTIONS (3)
  - Aplasia pure red cell [Recovered/Resolved]
  - Hypogammaglobulinaemia [Recovered/Resolved]
  - Malaise [Unknown]
